FAERS Safety Report 21815456 (Version 1)
Quarter: 2023Q1

REPORT INFORMATION
  Report Type: Spontaneous
  Country: US (occurrence: US)
  Receive Date: 20230104
  Receipt Date: 20230104
  Transmission Date: 20230418
  Serious: No
  Sender: FDA-Public Use
  Company Number: US-APOTEX-2022AP005095

PATIENT

DRUGS (1)
  1. BIMATOPROST [Suspect]
     Active Substance: BIMATOPROST
     Indication: Eyelash changes
     Dosage: UNK
     Route: 065

REACTIONS (2)
  - Product leakage [Unknown]
  - Product use in unapproved indication [Unknown]
